FAERS Safety Report 18248888 (Version 1)
Quarter: 2020Q3

REPORT INFORMATION
  Report Type: Spontaneous
  Country: US (occurrence: US)
  Receive Date: 20200909
  Receipt Date: 20200909
  Transmission Date: 20201103
  Serious: No
  Sender: FDA-Public Use
  Company Number: US-PERRIGO-20US010941

PATIENT
  Sex: Male
  Weight: 74.83 kg

DRUGS (2)
  1. ALBUTEROL SULFATE. [Suspect]
     Active Substance: ALBUTEROL SULFATE
     Indication: DYSPNOEA
     Dosage: 180 MCG OR UNKNOWN, QID, PRN
     Route: 055
     Dates: start: 2020, end: 20200723
  2. ALBUTEROL SULFATE. [Suspect]
     Active Substance: ALBUTEROL SULFATE
     Indication: CHRONIC OBSTRUCTIVE PULMONARY DISEASE
     Dosage: 180 MCG OR UNKNOWN, QID
     Route: 055
     Dates: start: 20200724

REACTIONS (2)
  - Device delivery system issue [Unknown]
  - Underdose [Unknown]

NARRATIVE: CASE EVENT DATE: 2020
